FAERS Safety Report 5708454-5 (Version None)
Quarter: 2008Q2

REPORT INFORMATION
  Report Type: 
  Country: None (occurrence: None)
  Receive Date: 20080417
  Receipt Date: 20080405
  Transmission Date: 20081010
  Serious: Yes (Other)
  Sender: FDA-Public Use
  Company Number: US-PFIZER INC-2008002557

PATIENT
  Sex: Female

DRUGS (7)
  1. CHANTIX [Suspect]
     Indication: SMOKING CESSATION THERAPY
     Dates: start: 20070901, end: 20071201
  2. ZITHROMAX [Suspect]
  3. LEVAQUIN [Suspect]
  4. DILTIAZEM [Concomitant]
  5. NIASPAN [Concomitant]
  6. ADVAIR HFA [Concomitant]
  7. ISOSORBIDE DINITRATE [Concomitant]

REACTIONS (1)
  - RASH PRURITIC [None]
